FAERS Safety Report 9462174 (Version 4)
Quarter: 2013Q3

REPORT INFORMATION
  Report Type: Spontaneous
  Country: JP (occurrence: JP)
  Receive Date: 20130816
  Receipt Date: 20130917
  Transmission Date: 20140515
  Serious: Yes (Death, Hospitalization, Other)
  Sender: FDA-Public Use
  Company Number: PHHY2013JP087767

PATIENT
  Sex: 0

DRUGS (11)
  1. NEORAL [Suspect]
     Indication: INTERSTITIAL LUNG DISEASE
     Dosage: 100 MG, DAILY
     Route: 048
     Dates: start: 20061110, end: 20061123
  2. NEORAL [Suspect]
     Indication: OFF LABEL USE
  3. NEORAL [Suspect]
     Indication: DERMATOMYOSITIS
  4. NEORAL [Suspect]
     Indication: INTERSTITIAL LUNG DISEASE
     Dosage: 5 MG, OT
     Dates: start: 20061124
  5. NEORAL [Suspect]
     Indication: DERMATOMYOSITIS
  6. NEORAL [Suspect]
     Indication: OFF LABEL USE
  7. METHYLPREDNISOLONE [Suspect]
     Indication: INTERSTITIAL LUNG DISEASE
     Dosage: 0.5 G, DAILY
     Route: 042
  8. METHYLPREDNISOLONE [Suspect]
     Indication: OFF LABEL USE
     Dosage: 0.5 G, DAILY ON 10TH
     Route: 042
  9. METHYLPREDNISOLONE [Suspect]
     Dosage: 1 G, DAILY FOR 3 CONSECUTIVE DAYS FROM THE 11TH TO 13TH
     Route: 042
  10. CYCLOPHOSPHAMIDE [Suspect]
     Indication: INTERSTITIAL LUNG DISEASE
     Dosage: 750 MG, DAILY ON 14TH
     Route: 042
  11. CYCLOPHOSPHAMIDE [Suspect]
     Indication: OFF LABEL USE

REACTIONS (3)
  - Respiratory failure [Fatal]
  - Pneumomediastinum [Fatal]
  - Drug ineffective for unapproved indication [Unknown]
